FAERS Safety Report 8349610-X (Version None)
Quarter: 2012Q2

REPORT INFORMATION
  Report Type: 
  Country: None (occurrence: None)
  Receive Date: 20120510
  Receipt Date: 20120502
  Transmission Date: 20120825
  Serious: Yes (Hospitalization, Other)
  Sender: FDA-Public Use
  Company Number: US-BAYER-2012-043639

PATIENT
  Sex: Female

DRUGS (2)
  1. YAZ [Suspect]
  2. YASMIN [Suspect]

REACTIONS (6)
  - PAIN [None]
  - EMOTIONAL DISTRESS [None]
  - PREMATURE DELIVERY [None]
  - INJURY [None]
  - PREGNANCY ON ORAL CONTRACEPTIVE [None]
  - MYOCARDIAL INFARCTION [None]
